FAERS Safety Report 9169683 (Version 2)
Quarter: 2013Q2

REPORT INFORMATION
  Report Type: Spontaneous
  Country: IL (occurrence: IL)
  Receive Date: 20130318
  Receipt Date: 20130516
  Transmission Date: 20140414
  Serious: Yes (Other)
  Sender: FDA-Public Use
  Company Number: IL-PFIZER INC-2013084317

PATIENT
  Age: 86 Year
  Sex: 0

DRUGS (1)
  1. HYDROCORTISONE SODIUM SUCCINATE [Suspect]
     Dosage: UNK

REACTIONS (2)
  - Respiratory failure [Unknown]
  - Stridor [Unknown]
